FAERS Safety Report 20385335 (Version 1)
Quarter: 2022Q1

REPORT INFORMATION
  Report Type: Spontaneous
  Country: US (occurrence: US)
  Receive Date: 20220127
  Receipt Date: 20220127
  Transmission Date: 20220423
  Serious: No
  Sender: FDA-Public Use
  Company Number: US-ALLERGAN-2110158US

PATIENT
  Age: 37 Year
  Sex: Female

DRUGS (5)
  1. BOTOX [Suspect]
     Active Substance: ONABOTULINUMTOXINA
     Indication: Torticollis
     Dosage: UNK, SINGLE
     Dates: start: 20210225, end: 20210225
  2. BIOTIN [Concomitant]
     Active Substance: BIOTIN
     Dosage: 1000 ?G, QD
  3. Blisovi 24-Fe [Concomitant]
     Indication: Contraception
     Route: 048
  4. PROPRANOLOL HCL 20mg Tab [Concomitant]
     Indication: Product used for unknown indication
     Dosage: 20 MG, TID
  5. VITAMINS [Concomitant]
     Active Substance: VITAMINS

REACTIONS (6)
  - Burning sensation [Unknown]
  - Flank pain [Unknown]
  - Back pain [Unknown]
  - Pain in extremity [Unknown]
  - Neck pain [Unknown]
  - Injection site pain [Not Recovered/Not Resolved]

NARRATIVE: CASE EVENT DATE: 20210226
